FAERS Safety Report 6807862-9 (Version None)
Quarter: 2010Q2

REPORT INFORMATION
  Report Type: 
  Country: None (occurrence: None)
  Receive Date: 20100629
  Receipt Date: 20090123
  Transmission Date: 20101027
  Serious: Yes (Hospitalization, Other)
  Sender: FDA-Public Use
  Company Number: US-PFIZER INC-2009160945

PATIENT
  Sex: Female

DRUGS (1)
  1. BEXTRA [Suspect]
     Indication: BACK PAIN
     Dosage: 10 MG, 1X/DAY
     Route: 048

REACTIONS (12)
  - APPETITE DISORDER [None]
  - ASTHMA [None]
  - CHEST DISCOMFORT [None]
  - CORONARY ARTERY DISEASE [None]
  - GENITOURINARY TRACT INFECTION [None]
  - GINGIVAL BLEEDING [None]
  - HEADACHE [None]
  - HYPERTHYROIDISM [None]
  - PARAESTHESIA [None]
  - ULCER [None]
  - VARICOSE VEIN [None]
  - VISION BLURRED [None]
